FAERS Safety Report 23940440 (Version 1)
Quarter: 2024Q2

REPORT INFORMATION
  Report Type: Spontaneous
  Country: US (occurrence: US)
  Receive Date: 20240605
  Receipt Date: 20240605
  Transmission Date: 20240716
  Serious: Yes (Other)
  Sender: FDA-Public Use
  Company Number: US-AZURITY PHARMACEUTICALS, INC.-US-2024AZR000666

PATIENT
  Sex: Female
  Weight: 69.841 kg

DRUGS (1)
  1. QBRELIS [Suspect]
     Active Substance: LISINOPRIL
     Indication: Hypertensive nephropathy
     Dosage: 10 ML, QD
     Route: 048

REACTIONS (2)
  - Impaired gastric emptying [Unknown]
  - Product use in unapproved indication [Unknown]
